FAERS Safety Report 8429204-8 (Version None)
Quarter: 2012Q2

REPORT INFORMATION
  Report Type: 
  Country: None (occurrence: None)
  Receive Date: 20120612
  Receipt Date: 20120606
  Transmission Date: 20120825
  Serious: Yes (Other)
  Sender: FDA-Public Use
  Company Number: PHHY2012MX049273

PATIENT
  Age: 75 Year
  Sex: Female

DRUGS (2)
  1. ZOLEDRONOC ACID [Suspect]
     Indication: OSTEOPOROSIS
     Dosage: 5 MG PER 100 ML
     Route: 042
     Dates: start: 20090513
  2. ZOLEDRONOC ACID [Suspect]
     Dosage: 5 MG PER 100 ML
     Route: 042
     Dates: start: 20120604

REACTIONS (5)
  - TACHYCARDIA [None]
  - BONE DENSITY DECREASED [None]
  - HYPERTENSION [None]
  - BONE PAIN [None]
  - CHEST PAIN [None]
